FAERS Safety Report 6616586-2 (Version None)
Quarter: 2010Q1

REPORT INFORMATION
  Report Type: 
  Country: None (occurrence: None)
  Receive Date: 20100305
  Receipt Date: 20100224
  Transmission Date: 20100710
  Serious: Yes (Death, Hospitalization)
  Sender: FDA-Public Use
  Company Number: PHHO2009CA02579

PATIENT
  Sex: Male
  Weight: 79 kg

DRUGS (5)
  1. AFINITOR [Suspect]
     Indication: NON-SMALL CELL LUNG CANCER
     Dosage: 150MG
     Route: 048
     Dates: start: 20090213
  2. ERLOTINIB [Suspect]
     Indication: NON-SMALL CELL LUNG CANCER
     Dosage: UNK
     Dates: start: 20090213
  3. CRESTOR [Concomitant]
     Indication: DYSLIPIDAEMIA
     Dosage: 5 MG, QHS
     Route: 048
     Dates: start: 20090212
  4. AVELOX [Concomitant]
     Indication: RESPIRATORY TRACT INFECTION
     Dosage: 400 MG, QD
     Route: 048
     Dates: start: 20090206, end: 20090215
  5. SERAX [Concomitant]
     Indication: INSOMNIA
     Dosage: 30 MG, QHS
     Route: 048
     Dates: start: 20090209

REACTIONS (7)
  - ANXIETY [None]
  - CHEST PAIN [None]
  - DEATH [None]
  - DYSPNOEA [None]
  - HAEMOPTYSIS [None]
  - PRODUCTIVE COUGH [None]
  - STRESS [None]
